FAERS Safety Report 15764950 (Version 1)
Quarter: 2018Q4

REPORT INFORMATION
  Report Type: Report from Study
  Country: CA (occurrence: CA)
  Receive Date: 20181227
  Receipt Date: 20181227
  Transmission Date: 20190205
  Serious: Yes (Other)
  Sender: FDA-Public Use
  Company Number: CA-SA-2018SA339418

PATIENT
  Age: 54 Year
  Sex: Female
  Weight: 82 kg

DRUGS (4)
  1. SAXENDA [Suspect]
     Active Substance: LIRAGLUTIDE
     Dosage: 1.8 MG, QD
     Route: 058
  2. RANITIDINE. [Suspect]
     Active Substance: RANITIDINE
     Dosage: UNK
  3. SAXENDA [Suspect]
     Active Substance: LIRAGLUTIDE
     Dosage: 3.0 MG, QD
     Route: 058
  4. SAXENDA [Suspect]
     Active Substance: LIRAGLUTIDE
     Indication: WEIGHT CONTROL
     Dosage: 0.6 MG, QD
     Route: 058

REACTIONS (3)
  - Concussion [Unknown]
  - Constipation [Unknown]
  - Nausea [Unknown]
